FAERS Safety Report 18288447 (Version 2)
Quarter: 2020Q4

REPORT INFORMATION
  Report Type: Spontaneous
  Country: US (occurrence: US)
  Receive Date: 20200921
  Receipt Date: 20201102
  Transmission Date: 20210113
  Serious: No
  Sender: FDA-Public Use
  Company Number: US-JNJFOC-20200925322

PATIENT
  Age: 55 Year
  Sex: Male
  Weight: 106.69 kg

DRUGS (6)
  1. INVEGA SUSTENNA [Suspect]
     Active Substance: PALIPERIDONE PALMITATE
  2. INVEGA SUSTENNA [Suspect]
     Active Substance: PALIPERIDONE PALMITATE
     Indication: SCHIZOPHRENIA
     Route: 030
  3. HALDOL [Concomitant]
     Active Substance: HALOPERIDOL
  4. COGENTIN [Concomitant]
     Active Substance: BENZTROPINE MESYLATE
  5. INVEGA SUSTENNA [Suspect]
     Active Substance: PALIPERIDONE PALMITATE
  6. HYDROPINE [Concomitant]

REACTIONS (5)
  - Aggression [Unknown]
  - Insomnia [Recovered/Resolved]
  - Emotional distress [Recovered/Resolved]
  - Crying [Recovered/Resolved]
  - Decreased appetite [Recovered/Resolved]

NARRATIVE: CASE EVENT DATE: 202009
